FAERS Safety Report 15965896 (Version 2)
Quarter: 2019Q2

REPORT INFORMATION
  Report Type: Spontaneous
  Country: US (occurrence: US)
  Receive Date: 20190215
  Receipt Date: 20190405
  Transmission Date: 20190711
  Serious: No
  Sender: FDA-Public Use
  Company Number: US-PFIZER INC-2019055666

PATIENT
  Age: 65 Year
  Sex: Female
  Weight: 85.73 kg

DRUGS (1)
  1. CHANTIX [Suspect]
     Active Substance: VARENICLINE TARTRATE
     Indication: SMOKING CESSATION THERAPY
     Dosage: UNK (TOOK AS DIRECTED )
     Dates: start: 201601, end: 201607

REACTIONS (1)
  - Nausea [Unknown]
